FAERS Safety Report 5582042-6 (Version None)
Quarter: 2007Q4

REPORT INFORMATION
  Report Type: 
  Country: None (occurrence: None)
  Receive Date: 20071130
  Receipt Date: 20070808
  Transmission Date: 20080405
  Serious: No
  Sender: FDA-Public Use
  Company Number: US200706002427

PATIENT
  Age: 46 Year
  Sex: Female

DRUGS (18)
  1. BYETTA [Suspect]
     Indication: TYPE 2 DIABETES MELLITUS
     Dosage: 5 UG, 2/D, 10 UG, 2/D
     Dates: start: 20060922, end: 20061001
  2. BYETTA [Suspect]
     Indication: TYPE 2 DIABETES MELLITUS
     Dosage: 5 UG, 2/D, 10 UG, 2/D
     Dates: start: 20061130
  3. LANTUS [Concomitant]
  4. HUMALOG [Concomitant]
  5. ROBAXIN [Concomitant]
  6. MEPERIDINE (PETHIDINE) [Concomitant]
  7. GLUCOPHAGE [Concomitant]
  8. NORVASC [Concomitant]
  9. COZAAR [Concomitant]
  10. CARDURA [Concomitant]
  11. CLONIDINE [Concomitant]
  12. ZOCOR [Concomitant]
  13. DEMECLOCYCLINE HCL [Concomitant]
  14. PRILOSEC [Concomitant]
  15. WELLBUTRIN SR [Concomitant]
  16. TEGRETOL [Concomitant]
  17. SINEQUAN [Concomitant]
  18. TEMAZEPAM [Concomitant]

REACTIONS (5)
  - BLOOD GLUCOSE INCREASED [None]
  - DRUG INEFFECTIVE [None]
  - INJECTION SITE PAIN [None]
  - NASAL CONGESTION [None]
  - SNEEZING [None]
